FAERS Safety Report 19749597 (Version 7)
Quarter: 2022Q4

REPORT INFORMATION
  Report Type: Spontaneous
  Country: US (occurrence: US)
  Receive Date: 20210826
  Receipt Date: 20221212
  Transmission Date: 20230113
  Serious: Yes (Other)
  Sender: FDA-Public Use
  Company Number: US-SA-SAC20210825000449

PATIENT
  Age: 53 Year
  Sex: Female

DRUGS (4)
  1. AUBAGIO [Suspect]
     Active Substance: TERIFLUNOMIDE
     Indication: Multiple sclerosis
     Dosage: 14 MG, QD
     Route: 048
     Dates: start: 20210526
  2. AUBAGIO [Suspect]
     Active Substance: TERIFLUNOMIDE
     Indication: Ataxia
  3. DULOXETINE HYDROCHLORIDE [Suspect]
     Active Substance: DULOXETINE HYDROCHLORIDE
  4. AMLODIPINE [Concomitant]
     Active Substance: AMLODIPINE BESYLATE

REACTIONS (8)
  - Multiple sclerosis relapse [Unknown]
  - Dysstasia [Unknown]
  - Gait disturbance [Unknown]
  - Insomnia [Unknown]
  - Hypoaesthesia [Unknown]
  - Back pain [Unknown]
  - Arthritis [Unknown]
  - Product use in unapproved indication [Unknown]

NARRATIVE: CASE EVENT DATE: 20210101
